FAERS Safety Report 12568591 (Version 1)
Quarter: 2016Q3

REPORT INFORMATION
  Report Type: Spontaneous
  Country: US (occurrence: None)
  Receive Date: 20160718
  Receipt Date: 20160718
  Transmission Date: 20161109
  Serious: Yes (Death)
  Sender: FDA-Public Use
  Company Number: None

PATIENT
  Age: 20 Year
  Sex: Male

DRUGS (1)
  1. MEPHYTON [Suspect]
     Active Substance: PHYTONADIONE
     Indication: CYSTIC FIBROSIS
     Route: 048
     Dates: start: 20150626

REACTIONS (1)
  - Death [None]

NARRATIVE: CASE EVENT DATE: 20160714
